FAERS Safety Report 23099115 (Version 11)
Quarter: 2025Q3

REPORT INFORMATION
  Report Type: Report from Study
  Country: US (occurrence: US)
  Receive Date: 20231024
  Receipt Date: 20250723
  Transmission Date: 20251021
  Serious: Yes (Hospitalization, Other)
  Sender: TAKEDA
  Company Number: US-PAREXEL-2021-KAM-US003551

PATIENT
  Age: 60 Year
  Sex: Female
  Weight: 47 kg

DRUGS (19)
  1. GLASSIA [Suspect]
     Active Substance: .ALPHA.1-PROTEINASE INHIBITOR HUMAN
     Indication: Alpha-1 antitrypsin deficiency
     Dosage: 60 MILLIGRAM/KILOGRAM, 1/WEEK
     Dates: start: 20200929
  2. GLASSIA [Suspect]
     Active Substance: .ALPHA.1-PROTEINASE INHIBITOR HUMAN
     Dosage: 60 MILLIGRAM, 1/WEEK
  3. GLASSIA [Suspect]
     Active Substance: .ALPHA.1-PROTEINASE INHIBITOR HUMAN
     Dosage: 60 MILLIGRAM/KILOGRAM, 1/WEEK
  4. DIPHENHYDRAMINE HYDROCHLORIDE [Concomitant]
     Active Substance: DIPHENHYDRAMINE HYDROCHLORIDE
  5. HEPARIN [Concomitant]
     Active Substance: HEPARIN SODIUM
  6. EPINEPHRINE [Concomitant]
     Active Substance: EPINEPHRINE
  7. SODIUM CHLORIDE [Concomitant]
     Active Substance: SODIUM CHLORIDE
  8. WIXELA INHUB [Concomitant]
     Active Substance: FLUTICASONE PROPIONATE\SALMETEROL XINAFOATE
  9. SPIRIVA [Concomitant]
     Active Substance: TIOTROPIUM BROMIDE MONOHYDRATE
  10. PROVENTIL [Concomitant]
     Active Substance: ALBUTEROL
  11. LIDOCAINE [Concomitant]
     Active Substance: LIDOCAINE
  12. ALENDRONATE SODIUM [Concomitant]
     Active Substance: ALENDRONATE SODIUM
  13. PREDNISONE [Concomitant]
     Active Substance: PREDNISONE
  14. PROVENTIL HFA [Concomitant]
     Active Substance: ALBUTEROL SULFATE
  15. OXYGEN [Concomitant]
     Active Substance: OXYGEN
  16. PULMICORT TURBUHALER [Concomitant]
     Active Substance: BUDESONIDE
  17. METHYLPREDNISOLONE [Concomitant]
     Active Substance: METHYLPREDNISOLONE
  18. CEFUROXIME [Concomitant]
     Active Substance: CEFUROXIME
  19. AMOXICILLIN\CLAVULANATE POTASSIUM [Concomitant]
     Active Substance: AMOXICILLIN\CLAVULANATE POTASSIUM

REACTIONS (19)
  - Vascular device infection [Unknown]
  - Haemoptysis [Unknown]
  - Pneumonia [Unknown]
  - Pulmonary haemorrhage [Unknown]
  - Productive cough [Unknown]
  - Weight decreased [Unknown]
  - Multiple allergies [Unknown]
  - Product dose omission issue [Unknown]
  - Infusion site swelling [Unknown]
  - Infusion site erythema [Unknown]
  - Infusion site inflammation [Unknown]
  - Product use issue [Unknown]
  - Fall [Recovering/Resolving]
  - Joint injury [Recovering/Resolving]
  - Arthralgia [Recovering/Resolving]
  - Wheezing [Unknown]
  - Rales [Unknown]
  - Cough [Unknown]
  - Dyspnoea [Unknown]

NARRATIVE: CASE EVENT DATE: 20230630
